FAERS Safety Report 4553438-6 (Version None)
Quarter: 2005Q1

REPORT INFORMATION
  Report Type: 
  Country: None (occurrence: None)
  Receive Date: 20050112
  Receipt Date: 20041222
  Transmission Date: 20050727
  Serious: Yes (Hospitalization)
  Sender: FDA-Public Use
  Company Number: GBS010508815

PATIENT
  Age: 47 Year
  Sex: Female
  Weight: 85 kg

DRUGS (2)
  1. PROZAC [Suspect]
     Indication: DEPRESSION
     Dosage: 20 MG/DAY
     Route: 048
     Dates: start: 20000520, end: 20010420
  2. NORIDAY                       (NORETHISTERONE) [Concomitant]

REACTIONS (3)
  - BENIGN INTRACRANIAL HYPERTENSION [None]
  - LIVER FUNCTION TEST ABNORMAL [None]
  - PAPILLOEDEMA [None]
